FAERS Safety Report 4713921-7 (Version None)
Quarter: 2005Q3

REPORT INFORMATION
  Report Type: 
  Country: None (occurrence: None)
  Receive Date: 20050712
  Receipt Date: 20050627
  Transmission Date: 20060218
  Serious: Yes (Hospitalization)
  Sender: FDA-Public Use
  Company Number: 2005BI012252

PATIENT
  Age: 51 Year
  Sex: Female
  Weight: 57.6068 kg

DRUGS (5)
  1. AVONEX [Suspect]
     Indication: MULTIPLE SCLEROSIS
     Dosage: IM
     Route: 030
     Dates: start: 20010101, end: 20040601
  2. COPAXONE [Concomitant]
  3. BETASERON [Concomitant]
  4. VITAMINS [Concomitant]
  5. NUTRACEUTICALS (DIETARY SUPPLEMENTS) [Concomitant]

REACTIONS (1)
  - COLORECTAL CANCER [None]
